FAERS Safety Report 12433616 (Version 2)
Quarter: 2016Q2

REPORT INFORMATION
  Report Type: Spontaneous
  Country: US (occurrence: US)
  Receive Date: 20160603
  Receipt Date: 20160627
  Transmission Date: 20160815
  Serious: Yes (Hospitalization)
  Sender: FDA-Public Use
  Company Number: US-SA-2015SA141651

PATIENT
  Age: 44 Year
  Sex: Male
  Weight: 63 kg

DRUGS (11)
  1. IBUPROFEN. [Concomitant]
     Active Substance: IBUPROFEN
     Indication: PYREXIA
     Dosage: 6 HOURS AS NEEDED
     Route: 048
  2. DELTASONE [Concomitant]
     Active Substance: PREDNISONE
     Dosage: STRENGTH:20 MG
  3. CORTEF [Concomitant]
     Active Substance: HYDROCORTISONE
     Dosage: STRENGTH; 10 MG;EVERY EVENING
     Route: 048
  4. CORTEF [Concomitant]
     Active Substance: HYDROCORTISONE
     Dosage: STRENGTH; 20 MG;EVERY MORNING
     Route: 048
  5. IBUPROFEN. [Concomitant]
     Active Substance: IBUPROFEN
     Indication: PAIN
     Dosage: 6 HOURS AS NEEDED
     Route: 048
  6. TYSABRI [Concomitant]
     Active Substance: NATALIZUMAB
     Dosage: 300 MG/15ML 15 ML CONCENTRATE EVERY 2B DAYS.
     Route: 042
  7. TRILEPTAL [Concomitant]
     Active Substance: OXCARBAZEPINE
     Dosage: STRENGTH: 300 MG
     Route: 048
  8. AUBAGIO [Suspect]
     Active Substance: TERIFLUNOMIDE
     Route: 065
  9. VITAMIN D [Concomitant]
     Active Substance: CHOLECALCIFEROL
  10. SYMBICORT [Concomitant]
     Active Substance: BUDESONIDE\FORMOTEROL FUMARATE DIHYDRATE
     Dosage: 160-4.5 MCG/ ACT IN AERO
     Route: 055
  11. DOCUSATE SODIUM. [Concomitant]
     Active Substance: DOCUSATE SODIUM
     Dosage: STRENGTH: 100 MG
     Route: 048

REACTIONS (2)
  - Unevaluable event [Unknown]
  - Feeling abnormal [Unknown]

NARRATIVE: CASE EVENT DATE: 2015
